FAERS Safety Report 13269003 (Version 4)
Quarter: 2018Q1

REPORT INFORMATION
  Report Type: Spontaneous
  Country: GB (occurrence: GB)
  Receive Date: 20170224
  Receipt Date: 20180322
  Transmission Date: 20180508
  Serious: Yes (Hospitalization, Other)
  Sender: FDA-Public Use
  Company Number: GB-SA-2017SA028641

PATIENT
  Age: 46 Year
  Sex: Female

DRUGS (10)
  1. CLINDAMYCIN. [Suspect]
     Active Substance: CLINDAMYCIN
     Route: 065
     Dates: start: 20160601, end: 20160923
  2. HUMIRA [Suspect]
     Active Substance: ADALIMUMAB
     Indication: HIDRADENITIS
     Route: 058
     Dates: end: 20160923
  3. PARACETAMOL [Concomitant]
     Active Substance: ACETAMINOPHEN
     Route: 065
  4. EPILIM [Concomitant]
     Active Substance: VALPROATE SODIUM
     Route: 065
  5. RIFAMPICIN [Suspect]
     Active Substance: RIFAMPIN
     Route: 048
     Dates: start: 20160601, end: 20160923
  6. SULFASALAZINE. [Concomitant]
     Active Substance: SULFASALAZINE
     Route: 065
  7. CELECOXIB. [Concomitant]
     Active Substance: CELECOXIB
     Route: 065
  8. HYDROXYCHLOROQUINE [Concomitant]
     Active Substance: HYDROXYCHLOROQUINE
     Route: 065
  9. ROACTEMRA [Suspect]
     Active Substance: TOCILIZUMAB
     Indication: RHEUMATOID ARTHRITIS
     Route: 058
     Dates: start: 20151129
  10. OLANZAPINE. [Concomitant]
     Active Substance: OLANZAPINE
     Route: 065

REACTIONS (4)
  - Adenocarcinoma [Unknown]
  - Hidradenitis [Recovered/Resolved]
  - Hidradenitis [Unknown]
  - Tubo-ovarian abscess [Recovering/Resolving]

NARRATIVE: CASE EVENT DATE: 2016
